FAERS Safety Report 11873080 (Version 1)
Quarter: 2015Q4

REPORT INFORMATION
  Report Type: Spontaneous
  Country: FR (occurrence: FR)
  Receive Date: 20151228
  Receipt Date: 20151228
  Transmission Date: 20160305
  Serious: Yes (Hospitalization)
  Sender: FDA-Public Use
  Company Number: FR-SA-2015SA214695

PATIENT
  Age: 74 Year
  Sex: Male
  Weight: 84 kg

DRUGS (11)
  1. ATENOLOL. [Suspect]
     Active Substance: ATENOLOL
     Indication: HYPERTENSION
     Route: 048
     Dates: start: 2013
  2. OLANZAPINE. [Concomitant]
     Active Substance: OLANZAPINE
  3. LASILIX [Suspect]
     Active Substance: FUROSEMIDE
     Indication: OEDEMA PERIPHERAL
     Route: 065
  4. ATENOLOL. [Suspect]
     Active Substance: ATENOLOL
     Indication: HYPERTENSION
     Route: 048
  5. LASILIX [Suspect]
     Active Substance: FUROSEMIDE
     Indication: OEDEMA PERIPHERAL
     Route: 048
     Dates: start: 201404, end: 20140603
  6. ATENOLOL. [Suspect]
     Active Substance: ATENOLOL
     Indication: HYPERTENSION
     Route: 048
     Dates: end: 20140603
  7. LIPANTHYL [Concomitant]
     Active Substance: FENOFIBRATE
     Dates: start: 2013
  8. AMLOR [Concomitant]
     Active Substance: AMLODIPINE BESYLATE
     Dates: start: 201310
  9. ATENOLOL. [Suspect]
     Active Substance: ATENOLOL
     Indication: HYPERTENSION
     Route: 048
     Dates: start: 201310
  10. CITALOPRAM [Concomitant]
     Active Substance: CITALOPRAM HYDROBROMIDE
  11. INEXIUM [Concomitant]
     Active Substance: ESOMEPRAZOLE
     Indication: GASTROOESOPHAGEAL REFLUX DISEASE
     Dates: start: 201212

REACTIONS (1)
  - Renal failure [Recovered/Resolved]

NARRATIVE: CASE EVENT DATE: 201405
